FAERS Safety Report 23471805 (Version 1)
Quarter: 2024Q1

REPORT INFORMATION
  Report Type: Spontaneous
  Country: US (occurrence: US)
  Receive Date: 20240202
  Receipt Date: 20240202
  Transmission Date: 20240410
  Serious: No
  Sender: FDA-Public Use
  Company Number: US-JNJFOC-20240180837

PATIENT
  Sex: Male

DRUGS (1)
  1. TOPIRAMATE [Suspect]
     Active Substance: TOPIRAMATE
     Indication: Psychomotor hyperactivity
     Dosage: 25 MG TWICE A DAY
     Route: 048

REACTIONS (3)
  - Sleep disorder [Unknown]
  - Decreased appetite [Unknown]
  - Off label use [Unknown]
